FAERS Safety Report 5647357-1 (Version None)
Quarter: 2008Q1

REPORT INFORMATION
  Report Type: 
  Country: None (occurrence: None)
  Receive Date: 20080131
  Receipt Date: 20071029
  Transmission Date: 20080703
  Serious: No
  Sender: FDA-Public Use
  Company Number: 163-21880-07101747

PATIENT
  Age: 67 Year
  Sex: Male

DRUGS (2)
  1. REVLIMID [Suspect]
     Indication: MULTIPLE MYELOMA
     Dosage: 20, MG, 2 IN 1 D,  10 MG 1 IN 1 D, ORAL
     Route: 048
     Dates: start: 20071010, end: 20071001
  2. REVLIMID [Suspect]
     Indication: MULTIPLE MYELOMA
     Dosage: 20, MG, 2 IN 1 D,  10 MG 1 IN 1 D, ORAL
     Route: 048
     Dates: start: 20071001

REACTIONS (1)
  - NEURALGIA [None]
